FAERS Safety Report 8875213 (Version 1)
Quarter: 2012Q4

REPORT INFORMATION
  Report Type: 
  Country: US (occurrence: US)
  Receive Date: 20121026
  Receipt Date: 20121026
  Transmission Date: 20130627
  Serious: No
  Sender: FDA-Public Use
  Company Number: US-AMGEN-USASP2012044891

PATIENT
  Age: 69 Year
  Sex: Female

DRUGS (3)
  1. ENBREL [Suspect]
     Indication: RHEUMATOID ARTHRITIS
     Dosage: 25 mg, 2 times/wk
     Dates: start: 20021215, end: 201204
  2. METHOTREXATE /00113802/ [Concomitant]
     Dosage: 1 mg, qwk
     Dates: start: 2009
  3. HYDROXYCHLOROQUINE                 /00072603/ [Concomitant]
     Dosage: UNK UNK, qd
     Dates: start: 2009

REACTIONS (2)
  - Arthralgia [Not Recovered/Not Resolved]
  - Joint warmth [Not Recovered/Not Resolved]
